FAERS Safety Report 17346789 (Version 1)
Quarter: 2020Q1

REPORT INFORMATION
  Report Type: Report from Study
  Country: US (occurrence: US)
  Receive Date: 20200129
  Receipt Date: 20200129
  Transmission Date: 20200409
  Serious: No
  Sender: FDA-Public Use
  Company Number: US-EXELIXIS-CABO-19021772

PATIENT
  Age: 64 Year
  Sex: Male

DRUGS (2)
  1. CABOMETYX [Suspect]
     Active Substance: CABOZANTINIB S-MALATE
     Dosage: 40 MG, QD (AM WITHOUT FOOD)
     Dates: start: 20190701
  2. CABOMETYX [Suspect]
     Active Substance: CABOZANTINIB S-MALATE
     Indication: RENAL CANCER
     Dosage: 60 MG, QD (AT MORNING WITHOUT FOOD)
     Dates: start: 20190516, end: 20190620

REACTIONS (7)
  - Oropharyngeal pain [Recovered/Resolved]
  - Fatigue [Unknown]
  - Sinus disorder [Recovered/Resolved]
  - Mouth ulceration [Unknown]
  - Pain in jaw [Recovered/Resolved]
  - Ear infection [Recovered/Resolved]
  - Liver function test increased [Recovering/Resolving]

NARRATIVE: CASE EVENT DATE: 2019
